FAERS Safety Report 6892464-9 (Version None)
Quarter: 2010Q3

REPORT INFORMATION
  Report Type: 
  Country: None (occurrence: None)
  Receive Date: 20100731
  Receipt Date: 20080522
  Transmission Date: 20110219
  Serious: No
  Sender: FDA-Public Use
  Company Number: US-PFIZER INC-2008046218

PATIENT
  Sex: Female
  Weight: 50.35 kg

DRUGS (6)
  1. NEURONTIN [Suspect]
     Indication: FIBROMYALGIA
     Dates: start: 20050101, end: 20050101
  2. PROMETHAZINE HCL [Concomitant]
  3. LORTAB [Concomitant]
  4. ZANAFLEX [Concomitant]
  5. PRENATAL VITAMINS [Concomitant]
  6. LOMOTIL [Concomitant]

REACTIONS (2)
  - HYPERSENSITIVITY [None]
  - SWELLING [None]
